FAERS Safety Report 12517604 (Version 5)
Quarter: 2016Q3

REPORT INFORMATION
  Report Type: Spontaneous
  Country: US (occurrence: US)
  Receive Date: 20160630
  Receipt Date: 20160805
  Transmission Date: 20161109
  Serious: No
  Sender: FDA-Public Use
  Company Number: US-TAKEDA-2016MPI005825

PATIENT
  Age: 76 Year
  Sex: Male

DRUGS (1)
  1. NINLARO [Suspect]
     Active Substance: IXAZOMIB
     Indication: PLASMA CELL MYELOMA
     Dosage: 3 MG, UNK
     Route: 048
     Dates: start: 20160513

REACTIONS (3)
  - No adverse event [Unknown]
  - Product blister packaging issue [Unknown]
  - Off label use [Unknown]

NARRATIVE: CASE EVENT DATE: 20160513
